FAERS Safety Report 25813053 (Version 2)
Quarter: 2025Q4

REPORT INFORMATION
  Report Type: Spontaneous
  Country: US (occurrence: US)
  Receive Date: 20250917
  Receipt Date: 20251020
  Transmission Date: 20260119
  Serious: Yes (Other)
  Sender: ALEXION PHARMACEUTICALS
  Company Number: US-AstraZeneca-CH-00950724A

PATIENT
  Sex: Male

DRUGS (3)
  1. CALQUENCE [Suspect]
     Active Substance: ACALABRUTINIB
     Route: 065
  2. CALQUENCE [Suspect]
     Active Substance: ACALABRUTINIB
     Route: 065
  3. TUMS [Concomitant]
     Active Substance: CALCIUM CARBONATE
     Route: 065

REACTIONS (9)
  - Atrial fibrillation [Unknown]
  - Blood pressure abnormal [Unknown]
  - Abdominal hernia [Unknown]
  - Gastrooesophageal reflux disease [Unknown]
  - Cardiac disorder [Unknown]
  - Oropharyngeal discomfort [Unknown]
  - Product use complaint [Unknown]
  - Therapeutic response unexpected [Unknown]
  - Drug intolerance [Unknown]
